FAERS Safety Report 6526507-9 (Version None)
Quarter: 2009Q4

REPORT INFORMATION
  Report Type: 
  Country: None (occurrence: None)
  Receive Date: 20091222
  Receipt Date: 20091214
  Transmission Date: 20100525
  Serious: Yes (Other)
  Sender: FDA-Public Use
  Company Number: A0834911A

PATIENT
  Age: 10 Year
  Sex: Male

DRUGS (1)
  1. SODIUM FLUORIDE + ISOPENTANE + SODIUM TRIPOLYPHOSPHATE TOOTH (NAFLUORI [Suspect]
     Indication: DENTAL DISORDER PROPHYLAXIS
     Dosage: DENTAL
     Route: 004
     Dates: start: 20091213, end: 20091213

REACTIONS (2)
  - CHOKING [None]
  - THROAT IRRITATION [None]
